FAERS Safety Report 4417662-5 (Version None)
Quarter: 2004Q2

REPORT INFORMATION
  Report Type: 
  Country: None (occurrence: None)
  Receive Date: 20040629
  Receipt Date: 20040210
  Transmission Date: 20050107
  Serious: Yes (Hospitalization)
  Sender: FDA-Public Use
  Company Number: USA040258983

PATIENT
  Age: 39 Year
  Sex: Female
  Weight: 82 kg

DRUGS (2)
  1. HUMALOG MIX 75/25 [Suspect]
     Indication: DIABETES MELLITUS
     Dates: start: 20030101
  2. HUMULIN R [Suspect]
     Indication: DIABETES MELLITUS
     Dates: start: 19910101, end: 20030101

REACTIONS (5)
  - BLOOD GLUCOSE INCREASED [None]
  - BLOOD POTASSIUM ABNORMAL [None]
  - BLOOD POTASSIUM DECREASED [None]
  - DEHYDRATION [None]
  - STOMACH DISCOMFORT [None]
